FAERS Safety Report 6195589-9 (Version None)
Quarter: 2009Q2

REPORT INFORMATION
  Report Type: 
  Country: None (occurrence: None)
  Receive Date: 20090519
  Receipt Date: 20090514
  Transmission Date: 20091009
  Serious: Yes (Hospitalization)
  Sender: FDA-Public Use
  Company Number: US-NOVOPROD-286576

PATIENT
  Sex: Female
  Weight: 72.562 kg

DRUGS (3)
  1. NOVOLIN 70/30 [Suspect]
     Indication: TYPE 1 DIABETES MELLITUS
     Dosage: 76 IU, QD (36 IN AM; 40 IN PM)
     Route: 058
     Dates: start: 20080101
  2. DILTIAZEM [Concomitant]
     Indication: HYPERTENSION
     Dosage: 60 MG, QD IN PM
     Route: 048
  3. LISINOPRIL [Concomitant]
     Indication: HYPERTENSION
     Dosage: 20 MG, QD IN AM
     Route: 048

REACTIONS (6)
  - ABDOMINAL DISCOMFORT [None]
  - BLOOD GLUCOSE INCREASED [None]
  - DECREASED APPETITE [None]
  - DEHYDRATION [None]
  - DEVICE MALFUNCTION [None]
  - NAUSEA [None]
